FAERS Safety Report 4678621-0 (Version None)
Quarter: 2005Q2

REPORT INFORMATION
  Report Type: 
  Country: None (occurrence: None)
  Receive Date: 20050527
  Receipt Date: 20050505
  Transmission Date: 20051028
  Serious: Yes (Death)
  Sender: FDA-Public Use
  Company Number: 05UK 0120

PATIENT
  Age: 70 Year
  Sex: Male

DRUGS (8)
  1. AGGRASTAT [Suspect]
     Indication: CORONARY ARTERY SURGERY
     Dates: start: 20041201, end: 20041201
  2. HEPARIN [Suspect]
     Indication: DRUG USE FOR UNKNOWN INDICATION
  3. BISOPROLOL FUMARATE [Concomitant]
  4. FUROSEMIDE [Concomitant]
  5. LOSARTAN POTASSIUM [Concomitant]
  6. SIMVASTATIN [Concomitant]
  7. LANSOPRAZOLE [Concomitant]
  8. CLOPIDOGREL BISULFATE [Concomitant]

REACTIONS (4)
  - CARDIAC FAILURE [None]
  - HAEMOGLOBIN DECREASED [None]
  - HAEMORRHAGE [None]
  - SEPSIS [None]
